FAERS Safety Report 25477784 (Version 1)
Quarter: 2025Q2

REPORT INFORMATION
  Report Type: Spontaneous
  Country: US (occurrence: US)
  Receive Date: 20250625
  Receipt Date: 20250625
  Transmission Date: 20250716
  Serious: No
  Sender: ABBVIE
  Company Number: US-ABBVIE-6331433

PATIENT
  Age: 67 Year
  Sex: Male

DRUGS (2)
  1. SUCRALFATE [Suspect]
     Active Substance: SUCRALFATE
     Indication: Ulcer
     Route: 065
     Dates: start: 20250602, end: 20250604
  2. SUCRALFATE [Suspect]
     Active Substance: SUCRALFATE
     Indication: Product used for unknown indication
     Route: 065
     Dates: start: 20250529

REACTIONS (6)
  - Gastrointestinal inflammation [Unknown]
  - Drug ineffective [Unknown]
  - Drug ineffective [Unknown]
  - Ulcer [Unknown]
  - Intestinal dilatation [Unknown]
  - Product use complaint [Unknown]

NARRATIVE: CASE EVENT DATE: 20250101
